FAERS Safety Report 24183799 (Version 2)
Quarter: 2025Q1

REPORT INFORMATION
  Report Type: Spontaneous
  Country: JP (occurrence: JP)
  Receive Date: 20240807
  Receipt Date: 20250123
  Transmission Date: 20250408
  Serious: Yes (Hospitalization)
  Sender: PFIZER
  Company Number: JP-PFIZER INC-PV202300158243

PATIENT
  Age: 7 Decade
  Sex: Female

DRUGS (17)
  1. NIRMATRELVIR\RITONAVIR [Interacting]
     Active Substance: NIRMATRELVIR\RITONAVIR
     Indication: COVID-19
     Dosage: [NIRMATRELVIR 300 MG]/[RITONAVIR 100 MG]; BID
     Dates: start: 202204, end: 2022
  2. TACROLIMUS [Interacting]
     Active Substance: TACROLIMUS
     Indication: Prophylaxis against transplant rejection
     Dosage: TAC-ER 2.5 MG (TWO CAPSULES OF 1.0 MG AND ONE CAPSULE OF 0.5 MG, AFTER BREAKFAST)
     Route: 048
     Dates: start: 2022
  3. PANTOTHENIC ACID [Concomitant]
     Active Substance: PANTOTHENIC ACID
     Dosage: ONE TABLET EACH, BID, AFTER BREAKFAST AND DINNER
     Dates: start: 2022
  4. EPRAZINONE HYDROCHLORIDE [Concomitant]
     Active Substance: EPRAZINONE HYDROCHLORIDE
     Dosage: ONE TABLET EACH, TID, AFTER MEAL
  5. ATOVAQUONE [Concomitant]
     Active Substance: ATOVAQUONE
     Dosage: ONE PACK, AFTER BREAKFAST
  6. PREGABALIN [Concomitant]
     Active Substance: PREGABALIN
     Dosage: ONE ORAL DISSOLVE EACH, BID, AFTER BREAKFAST AND DINNER
     Route: 048
  7. POLAPREZINC [Concomitant]
     Active Substance: POLAPREZINC
     Dosage: ONE TABLET EACH, BID, AFTER BREAKFAST AND DINNER
  8. ALFACALCIDOL [Concomitant]
     Active Substance: ALFACALCIDOL
     Dosage: ONE CAPSULE, AFTER BREAKFAST
  9. MAGNESIUM OXIDE [Concomitant]
     Active Substance: MAGNESIUM OXIDE
     Dosage: ONE TABLET EACH, BID, AFTER BREAKFAST AND DINNER
     Dates: start: 2022
  10. PREDNISOLONE [Concomitant]
     Active Substance: PREDNISOLONE
     Dosage: TWO TABLETS, AFTER BREAKFAST
  11. MYCOPHENOLATE MOFETIL [Concomitant]
     Active Substance: MYCOPHENOLATE MOFETIL
     Dosage: ONE CAPSULE EACH, BID, AFTER BREAKFAST AND DINNER
  12. RABEPRAZOLE SODIUM [Concomitant]
     Active Substance: RABEPRAZOLE SODIUM
     Dosage: ONE TABLET, AFTER BREAKFAST
  13. TRANEXAMIC ACID [Concomitant]
     Active Substance: TRANEXAMIC ACID
     Dosage: ONE CAPSULE EACH, TID, AFTER MEAL
  14. CARBOCYSTEINE [Concomitant]
     Active Substance: CARBOCYSTEINE
     Dosage: ONE CAPSULE EACH, TID, AFTER MEAL
  15. AMLODIPINE BESYLATE [Concomitant]
     Active Substance: AMLODIPINE BESYLATE
     Dosage: ONE ORAL DISSOLVE TABLET, AFTER BREAKFAST
     Route: 048
  16. CALCIUM POLYSTYRENE SULFONATE [Concomitant]
     Active Substance: CALCIUM POLYSTYRENE SULFONATE
     Dosage: ONE PACK, AFTER LUNCH
  17. BISOPROLOL FUMARATE [Concomitant]
     Active Substance: BISOPROLOL FUMARATE
     Dosage: 1.5 TABLET, AFTER BREAKFAST

REACTIONS (5)
  - Drug interaction [Recovered/Resolved]
  - Immunosuppressant drug level increased [Recovered/Resolved]
  - Diarrhoea [Recovered/Resolved]
  - Vomiting [Unknown]
  - Blood potassium increased [Unknown]

NARRATIVE: CASE EVENT DATE: 20220101
